FAERS Safety Report 23078212 (Version 1)
Quarter: 2023Q4

REPORT INFORMATION
  Report Type: Report from Study
  Country: US (occurrence: US)
  Receive Date: 20231018
  Receipt Date: 20231018
  Transmission Date: 20240109
  Serious: No
  Sender: FDA-Public Use
  Company Number: US-002147023-NVSC2023US223917

PATIENT
  Sex: Male

DRUGS (1)
  1. ENTRESTO [Suspect]
     Active Substance: SACUBITRIL\VALSARTAN
     Indication: Acute left ventricular failure
     Dosage: 1 DOSAGE FORM, BID
     Route: 048
     Dates: start: 202309

REACTIONS (1)
  - Dizziness [Not Recovered/Not Resolved]
